FAERS Safety Report 5498572-1 (Version None)
Quarter: 2007Q4

REPORT INFORMATION
  Report Type: 
  Country: None (occurrence: None)
  Receive Date: 20071025
  Receipt Date: 20071025
  Transmission Date: 20080405
  Serious: Yes (Hospitalization)
  Sender: FDA-Public Use
  Company Number: None

PATIENT
  Sex: Female

DRUGS (1)
  1. MYFORTIC [Suspect]

REACTIONS (5)
  - ARTERIOVENOUS FISTULA THROMBOSIS [None]
  - COMPLICATIONS OF TRANSPLANT SURGERY [None]
  - HAEMODIALYSIS [None]
  - TRANSPLANT FAILURE [None]
  - TRANSPLANT REJECTION [None]
